FAERS Safety Report 13877687 (Version 1)
Quarter: 2017Q3

REPORT INFORMATION
  Report Type: Spontaneous
  Country: FR (occurrence: FR)
  Receive Date: 20170817
  Receipt Date: 20170817
  Transmission Date: 20171127
  Serious: Yes (Hospitalization)
  Sender: FDA-Public Use
  Company Number: FR-PFIZER INC-2017356923

PATIENT
  Age: 58 Year
  Sex: Female

DRUGS (11)
  1. LEVOTHYROX [Concomitant]
     Active Substance: LEVOTHYROXINE
     Indication: HYPOTHYROIDISM
     Dosage: 225 UG, QD
     Route: 048
  2. EUPANTOL [Suspect]
     Active Substance: PANTOPRAZOLE SODIUM
     Dosage: 80 MG, QD
     Route: 048
     Dates: start: 20170717, end: 20170727
  3. OFLOXACINE ARROW [Suspect]
     Active Substance: OFLOXACIN
     Indication: TUBO-OVARIAN ABSCESS
     Dosage: 200 MG, BID
     Route: 048
     Dates: start: 20170717, end: 20170725
  4. METHOTREXATE SODIUM. [Suspect]
     Active Substance: METHOTREXATE SODIUM
     Indication: PSORIATIC ARTHROPATHY
     Dosage: 25 MG, 1/WEEK
     Route: 058
     Dates: start: 20170719
  5. GENTAMICINE PANPHARMA [Suspect]
     Active Substance: GENTAMICIN
     Indication: TUBO-OVARIAN ABSCESS
     Dosage: 320 MG, QD
     Route: 042
     Dates: start: 20170718, end: 20170725
  6. PARACETAMOL [Concomitant]
     Active Substance: ACETAMINOPHEN
     Indication: PROCEDURAL PAIN
     Dosage: UNK
     Route: 042
     Dates: start: 20170717
  7. FLUCONAZOLE KABI [Suspect]
     Active Substance: FLUCONAZOLE
     Indication: TUBO-OVARIAN ABSCESS
     Dosage: 200 MG, QD
     Route: 042
     Dates: start: 20170719, end: 20170724
  8. EUPANTOL [Interacting]
     Active Substance: PANTOPRAZOLE SODIUM
     Dosage: 40 MG, UNK
     Route: 048
     Dates: start: 20170727
  9. FUROSEMIDE. [Concomitant]
     Active Substance: FUROSEMIDE
     Indication: HYPERTENSION
     Dosage: UNK
     Route: 042
     Dates: start: 20170720
  10. PROFENID [Interacting]
     Active Substance: KETOPROFEN
     Indication: PROCEDURAL PAIN
     Dosage: 100 MG, QD
     Route: 042
     Dates: start: 20170717, end: 20170718
  11. CALCIPARINE [Concomitant]
     Active Substance: HEPARIN CALCIUM
     Indication: THROMBOSIS PROPHYLAXIS
     Dosage: 0.2 ML, BID
     Route: 058

REACTIONS (2)
  - Drug interaction [Unknown]
  - Pancytopenia [Recovering/Resolving]

NARRATIVE: CASE EVENT DATE: 20170717
